FAERS Safety Report 8273692-7 (Version None)
Quarter: 2012Q2

REPORT INFORMATION
  Report Type: 
  Country: None (occurrence: None)
  Receive Date: 20120411
  Receipt Date: 20120403
  Transmission Date: 20120825
  Serious: Yes (Other)
  Sender: FDA-Public Use
  Company Number: US-ASTELLAS-2012US003359

PATIENT
  Sex: Male
  Weight: 110 kg

DRUGS (2)
  1. PROGRAF [Suspect]
     Indication: HEART TRANSPLANT
     Dosage: 2 MG, BID
     Route: 048
     Dates: start: 20020315
  2. GLYBURIDE [Concomitant]
     Indication: DIABETES MELLITUS
     Dosage: 1.25 MG, BID
     Route: 048
     Dates: start: 20010301

REACTIONS (3)
  - HEART TRANSPLANT REJECTION [None]
  - DRUG INEFFECTIVE [None]
  - STENT PLACEMENT [None]
